FAERS Safety Report 13667844 (Version 1)
Quarter: 2017Q2

REPORT INFORMATION
  Report Type: Spontaneous
  Country: US (occurrence: US)
  Receive Date: 20170620
  Receipt Date: 20170620
  Transmission Date: 20170830
  Serious: Yes (Hospitalization, Other)
  Sender: FDA-Public Use
  Company Number: US-ZYDUS-015478

PATIENT
  Age: 76 Year
  Sex: Male

DRUGS (1)
  1. GABAPENTIN. [Suspect]
     Active Substance: GABAPENTIN
     Indication: PRODUCT USED FOR UNKNOWN INDICATION
     Route: 065

REACTIONS (9)
  - Urinary tract infection [Unknown]
  - Tremor [Recovered/Resolved]
  - Cognitive disorder [Recovering/Resolving]
  - Affective disorder [Recovering/Resolving]
  - Myoclonus [Unknown]
  - Delirium [Unknown]
  - Dyskinesia [Unknown]
  - Confusional state [Unknown]
  - Asthenia [Unknown]
